FAERS Safety Report 16598045 (Version 1)
Quarter: 2019Q3

REPORT INFORMATION
  Report Type: Spontaneous
  Country: US (occurrence: US)
  Receive Date: 20190606
  Receipt Date: 20190606
  Transmission Date: 20191004
  Serious: No
  Sender: FDA-Public Use
  Company Number: None

PATIENT

DRUGS (2)
  1. MIDAZOLAM HCL 2MG/ 2 ML SINGLE DOSE VIAL [Suspect]
     Active Substance: MIDAZOLAM HYDROCHLORIDE
  2. PROCHLORPERAZINE EDISYLATE 10MG / 2ML [Suspect]
     Active Substance: PROCHLORPERAZINE EDISYLATE

REACTIONS (1)
  - Product packaging confusion [None]
